FAERS Safety Report 6752998-4 (Version None)
Quarter: 2010Q2

REPORT INFORMATION
  Report Type: 
  Country: None (occurrence: None)
  Receive Date: 20100602
  Receipt Date: 20100602
  Transmission Date: 20101027
  Serious: Yes (Life-Threatening, Hospitalization)
  Sender: FDA-Public Use
  Company Number: None

PATIENT
  Age: 42 Year
  Sex: Female
  Weight: 62.1428 kg

DRUGS (2)
  1. TRI-SPRINTEC [Suspect]
     Indication: CONTRACEPTION
     Dosage: 1 PILL 1 X DAY ORAL AROUND 1989 BEGAN PILLS (ON AND OFF UNTIL 2010)
     Route: 048
     Dates: start: 19890101
  2. TRI-SPRINTEC [Suspect]
     Indication: CYST
     Dosage: 1 PILL 1 X DAY ORAL AROUND 1989 BEGAN PILLS (ON AND OFF UNTIL 2010)
     Route: 048
     Dates: start: 19890101

REACTIONS (4)
  - COAGULOPATHY [None]
  - PALPITATIONS [None]
  - PLEURISY [None]
  - PULMONARY EMBOLISM [None]
